FAERS Safety Report 4577553-6 (Version None)
Quarter: 2005Q1

REPORT INFORMATION
  Report Type: 
  Country: None (occurrence: None)
  Receive Date: 20050208
  Receipt Date: 20050126
  Transmission Date: 20050727
  Serious: Yes (Hospitalization)
  Sender: FDA-Public Use
  Company Number: 2005019813

PATIENT
  Age: 9 Year
  Sex: Male

DRUGS (1)
  1. ZITHROMAX [Suspect]
     Indication: ACUTE TONSILLITIS
     Dosage: 5 MG ( 5M , 1 IN 1 D), ORAL
     Route: 048

REACTIONS (2)
  - APHTHOUS STOMATITIS [None]
  - ERYTHEMA MULTIFORME [None]
